FAERS Safety Report 5235099-6 (Version None)
Quarter: 2007Q1

REPORT INFORMATION
  Report Type: 
  Country: None (occurrence: None)
  Receive Date: 20070207
  Receipt Date: 20070130
  Transmission Date: 20070707
  Serious: Yes (Hospitalization)
  Sender: FDA-Public Use
  Company Number: 056-C5013-07011507

PATIENT
  Age: 77 Year
  Sex: Female
  Weight: 77 kg

DRUGS (7)
  1. CC-5013 (LENALIDOMIDE) (CAPSULES) [Suspect]
     Indication: MULTIPLE MYELOMA
     Dosage: 25 MG, 1 IN 1 D, ORAL
     Route: 048
     Dates: start: 20060715, end: 20061123
  2. BISOPROLOL FUMARATE [Concomitant]
  3. PANTOPRAZOLE SODIUM [Concomitant]
  4. LEVOTHYROXINE SODIUM [Concomitant]
  5. PREVISCAN (FLUINDIONE) (TABLETS) [Concomitant]
  6. LYTOS (CLODRONATE DISODIUM) [Concomitant]
  7. PREDNISOLONE [Concomitant]

REACTIONS (4)
  - ANAEMIA [None]
  - ATRIAL FIBRILLATION [None]
  - CONDUCTION DISORDER [None]
  - GASTROINTESTINAL ANGIODYSPLASIA HAEMORRHAGIC [None]
